FAERS Safety Report 26066254 (Version 1)
Quarter: 2025Q4

REPORT INFORMATION
  Report Type: Spontaneous
  Country: EU (occurrence: EU)
  Receive Date: 20251119
  Receipt Date: 20251119
  Transmission Date: 20260118
  Serious: Yes (Other)
  Sender: SK LIFE SCIENCE
  Company Number: None

PATIENT

DRUGS (2)
  1. XCOPRI [Suspect]
     Active Substance: CENOBAMATE
     Indication: Partial seizures
     Dosage: 100 MILLIGRAM(S), IN 1 DAY
     Route: 048
     Dates: start: 20250410
  2. DYDROGESTERONE\ESTRADIOL [Suspect]
     Active Substance: DYDROGESTERONE\ESTRADIOL
     Indication: Hormone replacement therapy
     Dosage: 1 DOSAGE FORM, IN 1 DAY
     Route: 048
     Dates: start: 20240814

REACTIONS (3)
  - Amenorrhoea [Recovered/Resolved]
  - Drug interaction [Not Recovered/Not Resolved]
  - Off label use [Recovered/Resolved]

NARRATIVE: CASE EVENT DATE: 20250410
